FAERS Safety Report 6745749-0 (Version None)
Quarter: 2010Q2

REPORT INFORMATION
  Report Type: 
  Country: None (occurrence: None)
  Receive Date: 20100528
  Receipt Date: 20100518
  Transmission Date: 20101027
  Serious: Yes (Death, Hospitalization)
  Sender: FDA-Public Use
  Company Number: PHHY2010JP26751

PATIENT
  Age: 69 Year
  Sex: Male

DRUGS (3)
  1. ICL670A ICL+DISTAB [Suspect]
     Indication: IRON OVERLOAD
     Dosage: 1000 MG, UNK
     Route: 048
     Dates: start: 20090929
  2. NIFEDIPINE [Concomitant]
     Indication: APLASTIC ANAEMIA
     Dosage: 20 MG, UNK
     Route: 048
     Dates: start: 20100426
  3. RED BLOOD CELLS [Concomitant]
     Dosage: 6 UNITS EVERY 4 WEEKS
     Dates: end: 20100420

REACTIONS (9)
  - AEROMONA INFECTION [None]
  - BACTERIAL SEPSIS [None]
  - BLOOD CREATINE PHOSPHOKINASE INCREASED [None]
  - BLOOD CREATININE INCREASED [None]
  - C-REACTIVE PROTEIN INCREASED [None]
  - CLOSTRIDIAL INFECTION [None]
  - GANGRENE [None]
  - NECROTISING FASCIITIS [None]
  - PAIN IN EXTREMITY [None]
